FAERS Safety Report 4540463-4 (Version None)
Quarter: 2005Q1

REPORT INFORMATION
  Report Type: 
  Country: None (occurrence: None)
  Receive Date: 20041223
  Receipt Date: 20041028
  Transmission Date: 20050727
  Serious: No
  Sender: FDA-Public Use
  Company Number: US-JNJFOC-20041100430

PATIENT
  Age: 22 Year
  Sex: Female
  Weight: 71.6683 kg

DRUGS (5)
  1. ORTHO EVRA [Suspect]
     Indication: MENSTRUATION IRREGULAR
     Dosage: 1 DOSE(S), 3 IN 4 WEEK, TRANSDERMAL
     Route: 062
     Dates: start: 20041003
  2. B12 (CYANOCOBALAMIN) [Concomitant]
  3. VITAMINS (VITAMINS) [Concomitant]
  4. CALCIUM (CALCIUM) [Concomitant]
  5. IRON (IRON) [Concomitant]

REACTIONS (1)
  - METRORRHAGIA [None]
